FAERS Safety Report 10997417 (Version 1)
Quarter: 2015Q2

REPORT INFORMATION
  Report Type: Spontaneous
  Country: US (occurrence: None)
  Receive Date: 20150402
  Receipt Date: 20150402
  Transmission Date: 20150821
  Serious: Yes (Other)
  Sender: FDA-Public Use
  Company Number: 201501098

PATIENT
  Age: 62 Year
  Sex: Male
  Weight: 79.38 kg

DRUGS (1)
  1. XIAFLEX [Suspect]
     Active Substance: COLLAGENASE CLOSTRIDIUM HISTOLYTICUM
     Indication: PEYRONIE^S DISEASE
     Dosage: 1 IN 1 D INTRALESIONAL
     Dates: start: 20150112, end: 20150112

REACTIONS (4)
  - Penile pain [None]
  - Penile swelling [None]
  - Dysuria [None]
  - Penile haematoma [None]

NARRATIVE: CASE EVENT DATE: 20150112
